FAERS Safety Report 18128998 (Version 1)
Quarter: 2020Q3

REPORT INFORMATION
  Report Type: Spontaneous
  Country: US (occurrence: US)
  Receive Date: 20200808
  Receipt Date: 20200808
  Transmission Date: 20201103
  Serious: Yes (Life-Threatening, Other)
  Sender: FDA-Public Use
  Company Number: None

PATIENT
  Age: 30 Year
  Sex: Female
  Weight: 81 kg

DRUGS (1)
  1. MIRENA [Suspect]
     Active Substance: LEVONORGESTREL
     Indication: CONTRACEPTION

REACTIONS (8)
  - Endometriosis [None]
  - Vaginal haemorrhage [None]
  - Weight increased [None]
  - Abortion spontaneous [None]
  - Infertility female [None]
  - Complication associated with device [None]
  - Headache [None]
  - Quality of life decreased [None]
